FAERS Safety Report 9042294 (Version 1)
Quarter: 2013Q1

REPORT INFORMATION
  Report Type: Report from Study
  Country: US (occurrence: US)
  Receive Date: 20130129
  Receipt Date: 20130129
  Transmission Date: 20140127
  Serious: No
  Sender: FDA-Public Use
  Company Number: US-ABBOTT-12P-163-0909047-00

PATIENT
  Age: 74 Year
  Sex: Male

DRUGS (10)
  1. HUMIRA 40 MG/0.8 ML PEN [Suspect]
     Indication: CROHN^S DISEASE
     Dates: start: 20120119
  2. LOMOTIL [Concomitant]
     Indication: DIARRHOEA
     Dosage: AS REQUIRED
  3. ATENOLOL [Concomitant]
     Indication: BLOOD PRESSURE
     Dosage: DAILY
  4. FERROUS SULFATE [Concomitant]
     Indication: SUPPLEMENTATION THERAPY
     Dosage: DAILY
  5. ASCORBIC ACID [Concomitant]
     Indication: SUPPLEMENTATION THERAPY
     Dosage: DAILY
  6. MESALAMINE [Concomitant]
     Indication: CROHN^S DISEASE
     Dosage: DAILY
  7. OMEPRAZOLE [Concomitant]
     Indication: GASTROOESOPHAGEAL REFLUX DISEASE
     Dosage: DAILY
  8. HCTZ [Concomitant]
     Indication: BLOOD PRESSURE
     Dosage: DAILY
  9. B12 [Concomitant]
     Indication: CROHN^S DISEASE
  10. ENTOCORT [Concomitant]
     Indication: CROHN^S DISEASE
     Dosage: DAILY

REACTIONS (5)
  - Abdominal pain [Not Recovered/Not Resolved]
  - Rash [Not Recovered/Not Resolved]
  - Herpes zoster [Not Recovered/Not Resolved]
  - Abdominal distension [Not Recovered/Not Resolved]
  - Decreased appetite [Not Recovered/Not Resolved]
